FAERS Safety Report 7602594-1 (Version None)
Quarter: 2011Q3

REPORT INFORMATION
  Report Type: 
  Country: None (occurrence: None)
  Receive Date: 20110712
  Receipt Date: 20110628
  Transmission Date: 20111222
  Serious: Yes (Hospitalization)
  Sender: FDA-Public Use
  Company Number: SG-RANBAXY-2011US-45753

PATIENT
  Age: 29 Year
  Sex: Male
  Weight: 65 kg

DRUGS (1)
  1. ACETAMINOPHEN [Suspect]
     Indication: PRODUCT USED FOR UNKNOWN INDICATION
     Dosage: 30 G, UNK
     Route: 048

REACTIONS (3)
  - HEPATIC FAILURE [None]
  - NEPHROPATHY TOXIC [None]
  - OVERDOSE [None]
